FAERS Safety Report 12946795 (Version 10)
Quarter: 2017Q3

REPORT INFORMATION
  Report Type: Spontaneous
  Country: KR (occurrence: KR)
  Receive Date: 20161116
  Receipt Date: 20170913
  Transmission Date: 20171127
  Serious: Yes (Death, Hospitalization, Other)
  Sender: FDA-Public Use
  Company Number: KR-009507513-1611KOR006723

PATIENT
  Age: 61 Year
  Sex: Male
  Weight: 69.9 kg

DRUGS (57)
  1. SOLONDO [Concomitant]
     Active Substance: PREDNISOLONE
     Indication: PROPHYLAXIS OF NAUSEA AND VOMITING
     Dosage: 1 TABLET, QD
     Route: 048
     Dates: start: 20161011, end: 20161017
  2. HUMALOG [Concomitant]
     Active Substance: INSULIN LISPRO
     Dosage: 2 IU, ONCE
     Route: 058
     Dates: start: 20161011, end: 20161011
  3. HUMALOG [Concomitant]
     Active Substance: INSULIN LISPRO
     Dosage: 6 IU, TID
     Route: 058
     Dates: start: 20161014, end: 20161014
  4. HUMALOG [Concomitant]
     Active Substance: INSULIN LISPRO
     Dosage: 9 IU, ONCE
     Route: 058
     Dates: start: 20161014, end: 20161014
  5. HUMALOG [Concomitant]
     Active Substance: INSULIN LISPRO
     Dosage: 3 IU, ONCE
     Route: 058
     Dates: start: 20161021, end: 20161021
  6. HUMALOG [Concomitant]
     Active Substance: INSULIN LISPRO
     Dosage: 4 IU, BID
     Route: 058
     Dates: start: 20161023, end: 20161023
  7. MEVALOTIN [Concomitant]
     Active Substance: PRAVASTATIN SODIUM
     Indication: HYPERLIPIDAEMIA
     Dosage: 1 TABLET, QD
     Route: 048
     Dates: start: 20160930, end: 20161006
  8. LANTUS [Concomitant]
     Active Substance: INSULIN GLARGINE
     Dosage: 12 IU, ONCE
     Route: 058
     Dates: start: 20161014, end: 20161014
  9. LANTUS [Concomitant]
     Active Substance: INSULIN GLARGINE
     Dosage: 14 IU, ONCE
     Route: 058
     Dates: start: 20161017, end: 20161017
  10. PROAMIN [Concomitant]
     Indication: HYPOPHAGIA
     Dosage: 500 ML, QD; 200 ML BAG
     Route: 042
     Dates: start: 20161006, end: 20161007
  11. DEXAMETHASONE SODIUM PHOSPHATE. [Concomitant]
     Active Substance: DEXAMETHASONE SODIUM PHOSPHATE
     Dosage: 8 MG, QD
     Route: 042
     Dates: start: 20161014, end: 20161016
  12. HUMALOG [Concomitant]
     Active Substance: INSULIN LISPRO
     Dosage: 5 IU, TID
     Route: 058
     Dates: start: 20160930, end: 20160930
  13. HUMALOG [Concomitant]
     Active Substance: INSULIN LISPRO
     Dosage: 4 IU, TID
     Route: 058
     Dates: start: 20161020, end: 20161020
  14. LANTUS [Concomitant]
     Active Substance: INSULIN GLARGINE
     Dosage: 10 IU, ONCE
     Route: 058
     Dates: start: 20161010, end: 20161010
  15. LANTUS [Concomitant]
     Active Substance: INSULIN GLARGINE
     Dosage: 12 IU, QD
     Route: 058
     Dates: start: 20161018, end: 20161019
  16. LANSTON [Concomitant]
     Active Substance: LANSOPRAZOLE
     Indication: PROPHYLAXIS
     Dosage: 1 TABLET, QD
     Route: 048
     Dates: start: 20161013, end: 20161016
  17. GASMOTIN [Concomitant]
     Active Substance: MOSAPRIDE CITRATE
     Indication: PROPHYLAXIS
     Dosage: 1 DF, TID
     Route: 048
     Dates: start: 20161019
  18. CISPLAN [Concomitant]
     Active Substance: CISPLATIN
     Indication: CHEMOTHERAPY
     Dosage: 90 MG, ONCE (CYCLE 3), STRENGTH : 10MG/20ML
     Route: 042
     Dates: start: 20161013, end: 20161013
  19. HUMALOG [Concomitant]
     Active Substance: INSULIN LISPRO
     Indication: DIABETES MELLITUS
     Dosage: 10 IU, ONCE
     Route: 058
     Dates: start: 20160929, end: 20160929
  20. HUMALOG [Concomitant]
     Active Substance: INSULIN LISPRO
     Dosage: 4 IU, ONCE
     Route: 058
     Dates: start: 20161007, end: 20161007
  21. HUMALOG [Concomitant]
     Active Substance: INSULIN LISPRO
     Dosage: 4 IU, ONCE
     Route: 058
     Dates: start: 20161008, end: 20161008
  22. HUMALOG [Concomitant]
     Active Substance: INSULIN LISPRO
     Dosage: 3 IU, ONCE
     Route: 058
     Dates: start: 20161012, end: 20161012
  23. HUMALOG [Concomitant]
     Active Substance: INSULIN LISPRO
     Dosage: 6 IU, ONCE
     Route: 058
     Dates: start: 20161017, end: 20161017
  24. HUMALOG [Concomitant]
     Active Substance: INSULIN LISPRO
     Dosage: 4 IU, ONCE
     Route: 058
     Dates: start: 20161027
  25. LANTUS [Concomitant]
     Active Substance: INSULIN GLARGINE
     Dosage: 8 IU, ONCE
     Route: 058
     Dates: start: 20161009, end: 20161009
  26. CILOSTAZOL. [Concomitant]
     Active Substance: CILOSTAZOL
     Indication: CEREBRAL INFARCTION
     Dosage: 1 TABLET, QD
     Route: 048
     Dates: start: 20161007
  27. TAMSULOSIN HYDROCHLORIDE. [Concomitant]
     Active Substance: TAMSULOSIN HYDROCHLORIDE
     Indication: METASTASES TO PROSTATE
     Dosage: 0.2 MG, QD
     Route: 048
     Dates: start: 20160611
  28. VITAMINS (UNSPECIFIED) [Concomitant]
     Active Substance: VITAMINS
     Indication: PROPHYLAXIS
     Dosage: 5 ML, QD
     Route: 042
     Dates: start: 20161006, end: 20161007
  29. EMEND (FOSAPREPITANT DIMEGLUMINE) [Suspect]
     Active Substance: FOSAPREPITANT DIMEGLUMINE
     Indication: PROPHYLAXIS OF NAUSEA AND VOMITING
     Dosage: 150 MG, ONCE
     Route: 042
     Dates: start: 20161013, end: 20161013
  30. DEXAMETHASONE SODIUM PHOSPHATE. [Concomitant]
     Active Substance: DEXAMETHASONE SODIUM PHOSPHATE
     Indication: PROPHYLAXIS OF NAUSEA AND VOMITING
     Dosage: 12 MG, ONCE
     Route: 042
     Dates: start: 20161013, end: 20161013
  31. ALOXI [Concomitant]
     Active Substance: PALONOSETRON HYDROCHLORIDE
     Indication: PROPHYLAXIS OF NAUSEA AND VOMITING
     Dosage: 0.25 MG, ONCE
     Route: 042
     Dates: start: 20161013, end: 20161013
  32. HUMALOG [Concomitant]
     Active Substance: INSULIN LISPRO
     Dosage: 3 IU, ONCE
     Route: 058
     Dates: start: 20161014, end: 20161014
  33. HUMALOG [Concomitant]
     Active Substance: INSULIN LISPRO
     Dosage: 8 IU, TID
     Route: 058
     Dates: start: 20161015, end: 20161015
  34. CENTRUM SILVER ADVANCE (LYCOPENE (+) MINERALS (UNSPECIFIED) (+) VITAMI [Concomitant]
     Indication: PROPHYLAXIS
     Dosage: 1 TABLET, QD
     Route: 048
     Dates: start: 20160930
  35. LANTUS [Concomitant]
     Active Substance: INSULIN GLARGINE
     Indication: DIABETES MELLITUS
     Dosage: 10 IU, ONCE
     Route: 058
     Dates: start: 20160930, end: 20160930
  36. LANTUS [Concomitant]
     Active Substance: INSULIN GLARGINE
     Dosage: 10 IU, ONCE
     Route: 058
     Dates: start: 20161022, end: 20161022
  37. LANTUS [Concomitant]
     Active Substance: INSULIN GLARGINE
     Dosage: 10 IU, ONCE
     Route: 058
     Dates: start: 20161025, end: 20161025
  38. MANNITOL. [Concomitant]
     Active Substance: MANNITOL
     Indication: PROPHYLAXIS
     Dosage: 100 ML, ONCE; STRENGTH ALSO REPORTED AS ^100ML^
     Route: 042
     Dates: start: 20161013, end: 20161013
  39. GEMZAR [Concomitant]
     Active Substance: GEMCITABINE HYDROCHLORIDE
     Dosage: 1260 MG, ONCE (CYCLE 3)
     Route: 042
     Dates: start: 20161013, end: 20161013
  40. HUMALOG [Concomitant]
     Active Substance: INSULIN LISPRO
     Dosage: 3 IU, ONCE
     Route: 058
     Dates: start: 20160929, end: 20160929
  41. HUMALOG [Concomitant]
     Active Substance: INSULIN LISPRO
     Dosage: 14 IU, ONCE
     Route: 058
     Dates: start: 20161013, end: 20161013
  42. HUMALOG [Concomitant]
     Active Substance: INSULIN LISPRO
     Dosage: 6 IU, TID
     Route: 058
     Dates: start: 20161018, end: 20161018
  43. NUTRIFLEX [Concomitant]
     Active Substance: AMINO ACIDS\CARBOHYDRATES\ELECTROLYTES NOS
     Indication: HYPOPHAGIA
     Dosage: 1250 ML, ONCE
     Route: 042
     Dates: start: 20160929, end: 20160929
  44. LANTUS [Concomitant]
     Active Substance: INSULIN GLARGINE
     Dosage: 10 IU, ONCE
     Route: 058
     Dates: start: 20161020, end: 20161020
  45. SMOFKABIVEN [Concomitant]
     Active Substance: AMINO ACIDS\DEXTROSE\ELECTROLYTES NOS\SOYBEAN OIL
     Indication: HYPOPHAGIA
     Dosage: 1448 ML, ONCE
     Route: 042
     Dates: start: 20161009, end: 20161009
  46. GEMZAR [Concomitant]
     Active Substance: GEMCITABINE HYDROCHLORIDE
     Indication: CHEMOTHERAPY
     Dosage: 1430 MG, ONCE (CYCLE 2)
     Route: 042
     Dates: start: 20160929, end: 20160929
  47. HUMALOG [Concomitant]
     Active Substance: INSULIN LISPRO
     Dosage: 4 IU, ONCE
     Route: 058
     Dates: start: 20161021, end: 20161021
  48. HUMALOG [Concomitant]
     Active Substance: INSULIN LISPRO
     Dosage: 4 IU, TID
     Route: 058
     Dates: start: 20161022, end: 20161022
  49. SMOFKABIVEN [Concomitant]
     Active Substance: AMINO ACIDS\DEXTROSE\ELECTROLYTES NOS\SOYBEAN OIL
     Dosage: 1477 ML, ONCE
     Route: 042
     Dates: start: 20161011, end: 20161011
  50. HUMALOG [Concomitant]
     Active Substance: INSULIN LISPRO
     Dosage: 2 IU, ONCE
     Route: 058
     Dates: start: 20160930, end: 20160930
  51. HUMALOG [Concomitant]
     Active Substance: INSULIN LISPRO
     Dosage: 3 IU, ONCE
     Route: 058
     Dates: start: 20161015, end: 20161015
  52. HUMALOG [Concomitant]
     Active Substance: INSULIN LISPRO
     Dosage: 6 IU, BID
     Route: 058
     Dates: start: 20161019, end: 20161019
  53. HUMALOG [Concomitant]
     Active Substance: INSULIN LISPRO
     Dosage: 4 IU, BID
     Route: 058
     Dates: start: 20161025, end: 20161025
  54. HUMALOG [Concomitant]
     Active Substance: INSULIN LISPRO
     Dosage: 4 IU, ONCE
     Route: 058
     Dates: start: 20161026, end: 20161026
  55. LANTUS [Concomitant]
     Active Substance: INSULIN GLARGINE
     Dosage: 10 IU, ONCE
     Route: 058
     Dates: start: 20161006, end: 20161006
  56. LANTUS [Concomitant]
     Active Substance: INSULIN GLARGINE
     Dosage: 14 IU, QD
     Route: 058
     Dates: start: 20161015, end: 20161016
  57. MEGACE [Concomitant]
     Active Substance: MEGESTROL ACETATE
     Indication: HYPOPHAGIA
     Dosage: 1 DF (REPORTED AS ^1 PKG^), QD
     Route: 048
     Dates: start: 20161012, end: 20161017

REACTIONS (12)
  - Portal vein thrombosis [Not Recovered/Not Resolved]
  - Drug ineffective [Unknown]
  - Weight increased [Recovered/Resolved]
  - Diarrhoea [Recovered/Resolved]
  - Hypocalcaemia [Not Recovered/Not Resolved]
  - Diarrhoea [Recovered/Resolved]
  - Hepatic failure [Fatal]
  - Hyperkalaemia [Recovered/Resolved]
  - Abdominal pain [Recovered/Resolved]
  - Hypokalaemia [Recovered/Resolved]
  - Hypomagnesaemia [Recovered/Resolved]
  - Ascites [Not Recovered/Not Resolved]

NARRATIVE: CASE EVENT DATE: 20161013
